FAERS Safety Report 8434993-2 (Version None)
Quarter: 2012Q2

REPORT INFORMATION
  Report Type: 
  Country: None (occurrence: None)
  Receive Date: 20120614
  Receipt Date: 20120611
  Transmission Date: 20120825
  Serious: Yes (Other)
  Sender: FDA-Public Use
  Company Number: US-PFIZER INC-2012141217

PATIENT
  Sex: Male
  Weight: 109 kg

DRUGS (4)
  1. ALPRAZOLAM [Suspect]
     Indication: PANIC ATTACK
     Dosage: 1 TABLET, 3X/DAY
     Route: 048
  2. ALPRAZOLAM [Suspect]
     Dosage: 1 TABLET, DAILY
     Route: 048
  3. ALPRAZOLAM [Suspect]
     Indication: ANXIETY
     Dosage: 1 MG, UNK
     Route: 048
     Dates: start: 19960101
  4. ALPRAZOLAM [Suspect]
     Dosage: 1 TABLET, 2X/DAY
     Route: 048

REACTIONS (14)
  - PAIN [None]
  - ANXIETY [None]
  - PANIC ATTACK [None]
  - CLUMSINESS [None]
  - APPETITE DISORDER [None]
  - SOMNOLENCE [None]
  - DRUG DEPENDENCE [None]
  - ACTIVITIES OF DAILY LIVING IMPAIRED [None]
  - LETHARGY [None]
  - LIBIDO DISORDER [None]
  - FATIGUE [None]
  - SPEECH DISORDER [None]
  - HEADACHE [None]
  - GAIT DISTURBANCE [None]
